FAERS Safety Report 10112398 (Version 6)
Quarter: 2014Q2

REPORT INFORMATION
  Report Type: Report from Study
  Country: US (occurrence: US)
  Receive Date: 20140425
  Receipt Date: 20140627
  Transmission Date: 20141212
  Serious: Yes (Life-Threatening, Hospitalization)
  Sender: FDA-Public Use
  Company Number: US-ONYX-2014-0893

PATIENT
  Age: 53 Year
  Sex: Male
  Weight: 72.64 kg

DRUGS (10)
  1. CARFILZOMIB [Suspect]
     Indication: PLASMA CELL MYELOMA
     Route: 042
     Dates: start: 20140224, end: 20140415
  2. PANOBINOSTAT [Concomitant]
     Indication: PLASMA CELL MYELOMA
     Route: 048
     Dates: start: 20140224, end: 20140416
  3. CLONAZEPAM [Concomitant]
     Indication: INSOMNIA
     Route: 048
     Dates: start: 201210
  4. GABAPENTIN [Concomitant]
     Indication: PAIN
     Dates: start: 201210, end: 20140324
  5. METFORMIN [Concomitant]
     Indication: DIABETES MELLITUS
     Route: 048
     Dates: start: 201210
  6. PANTOPRAZOLE [Concomitant]
     Indication: GASTROOESOPHAGEAL REFLUX DISEASE
     Route: 048
     Dates: start: 201210
  7. ASPIRIN [Concomitant]
     Indication: PRODUCT USED FOR UNKNOWN INDICATION
     Route: 048
     Dates: start: 20130213
  8. NOVOLIN [Concomitant]
     Indication: DIABETES MELLITUS
     Dates: start: 20140131, end: 20140324
  9. FENTANYL PATCH [Concomitant]
     Indication: PAIN
     Dates: start: 20130730
  10. REGLAN [Concomitant]
     Indication: NAUSEA
     Route: 048
     Dates: start: 20140228

REACTIONS (2)
  - Thrombotic thrombocytopenic purpura [Recovered/Resolved]
  - Haemolytic uraemic syndrome [Recovered/Resolved]
